FAERS Safety Report 6582819-4 (Version None)
Quarter: 2010Q1

REPORT INFORMATION
  Report Type: 
  Country: None (occurrence: None)
  Receive Date: 20100216
  Receipt Date: 20091210
  Transmission Date: 20100710
  Serious: Yes (Death, Other)
  Sender: FDA-Public Use
  Company Number: US-PFIZER INC-2009280481

PATIENT
  Sex: Male

DRUGS (1)
  1. REVATIO [Suspect]
     Indication: PULMONARY HYPERTENSION
     Dosage: 20 MG, 3X/DAY

REACTIONS (6)
  - BRONCHITIS [None]
  - CELLULITIS [None]
  - HYPERTENSION [None]
  - OBESITY [None]
  - OXYGEN SATURATION [None]
  - PULMONARY ARTERIAL HYPERTENSION [None]
